FAERS Safety Report 5425424-5 (Version None)
Quarter: 2007Q3

REPORT INFORMATION
  Report Type: 
  Country: None (occurrence: None)
  Receive Date: 20070824
  Receipt Date: 20070801
  Transmission Date: 20080115
  Serious: No
  Sender: FDA-Public Use
  Company Number: US-BOEHRINGER INGELHEIM PHARMACEUTICALS, INC.-2007-BP-17674BP

PATIENT
  Age: 43 Year
  Sex: Male
  Weight: 129 kg

DRUGS (1)
  1. MIRAPEX [Suspect]
     Route: 048
     Dates: end: 20070718

REACTIONS (4)
  - DYSPHAGIA [None]
  - HYPERSOMNIA [None]
  - NAUSEA [None]
  - VOMITING [None]
